FAERS Safety Report 4721640-6 (Version None)
Quarter: 2005Q3

REPORT INFORMATION
  Report Type: 
  Country: None (occurrence: None)
  Receive Date: 20050720
  Receipt Date: 20050706
  Transmission Date: 20060218
  Serious: Yes (Hospitalization)
  Sender: FDA-Public Use
  Company Number: 2005FR-00123

PATIENT
  Age: 7 Year
  Sex: Female
  Weight: 30 kg

DRUGS (5)
  1. IBUPROFEN [Suspect]
     Indication: ABDOMINAL PAIN
     Dosage: 150 MG, ORAL
     Route: 048
     Dates: start: 20041204, end: 20041204
  2. DICLOFENAC SODIUM [Concomitant]
  3. CEFTRIAXONE [Concomitant]
  4. ONDANSETRON [Concomitant]
  5. ACETAMINOPHEN [Concomitant]

REACTIONS (6)
  - ABDOMINAL PAIN [None]
  - DIARRHOEA [None]
  - PERITONEAL DIALYSIS [None]
  - RENAL FAILURE ACUTE [None]
  - RENAL TUBULAR NECROSIS [None]
  - VOMITING [None]
